FAERS Safety Report 6737033-6 (Version None)
Quarter: 2010Q2

REPORT INFORMATION
  Report Type: 
  Country: None (occurrence: None)
  Receive Date: 20100523
  Receipt Date: 20100518
  Transmission Date: 20101027
  Serious: Yes (Hospitalization)
  Sender: FDA-Public Use
  Company Number: PL-BRISTOL-MYERS SQUIBB COMPANY-15074156

PATIENT
  Age: 34 Year
  Sex: Female

DRUGS (6)
  1. ABATACEPT [Suspect]
     Indication: GLOMERULONEPHRITIS PROLIFERATIVE
     Route: 042
     Dates: start: 20090218
  2. CELLCEPT [Suspect]
     Indication: GLOMERULONEPHRITIS PROLIFERATIVE
     Route: 048
     Dates: start: 20090218
  3. CALCORT [Suspect]
     Indication: GLOMERULONEPHRITIS PROLIFERATIVE
     Route: 048
     Dates: start: 20090218
  4. NITRENDIPINE [Concomitant]
  5. RANITIDINE [Concomitant]
  6. ATORVASTATIN [Concomitant]

REACTIONS (1)
  - GASTRITIS [None]
